FAERS Safety Report 17236661 (Version 1)
Quarter: 2020Q1

REPORT INFORMATION
  Report Type: Spontaneous
  Country: SE (occurrence: SE)
  Receive Date: 20200106
  Receipt Date: 20200106
  Transmission Date: 20200409
  Serious: Yes (Hospitalization)
  Sender: FDA-Public Use
  Company Number: SE-PFIZER INC-2020001085

PATIENT
  Age: 17 Year
  Sex: Female

DRUGS (3)
  1. SERTRALINE HCL [Suspect]
     Active Substance: SERTRALINE HYDROCHLORIDE
     Dosage: 50 MG, UNK
     Route: 045
     Dates: start: 20190720, end: 20190720
  2. MELATONIN [Suspect]
     Active Substance: MELATONIN
     Dosage: 15 MG, UNK
     Route: 045
     Dates: start: 20190720, end: 20190720
  3. PROPAVAN [Suspect]
     Active Substance: PROPIOMAZINE
     Dosage: 50 MG, UNK
     Route: 045
     Dates: start: 20190720, end: 20190720

REACTIONS (3)
  - Drug abuse [Unknown]
  - Fatigue [Unknown]
  - Intentional overdose [Unknown]

NARRATIVE: CASE EVENT DATE: 20190720
